FAERS Safety Report 4996800-X (Version None)
Quarter: 2006Q2

REPORT INFORMATION
  Report Type: 
  Country: None (occurrence: None)
  Receive Date: 20060509
  Receipt Date: 20060501
  Transmission Date: 20061013
  Serious: Yes (Hospitalization, Other)
  Sender: FDA-Public Use
  Company Number: US-JNJFOC-20060500655

PATIENT
  Sex: Female
  Weight: 77.57 kg

DRUGS (1)
  1. REMICADE [Suspect]
     Indication: CROHN'S DISEASE
     Dosage: 6 VIALS

REACTIONS (2)
  - INTESTINAL OPERATION [None]
  - POSTOPERATIVE INFECTION [None]
